FAERS Safety Report 4471336-3 (Version None)
Quarter: 2004Q4

REPORT INFORMATION
  Report Type: 
  Country: None (occurrence: None)
  Receive Date: 20041006
  Receipt Date: 20040924
  Transmission Date: 20050328
  Serious: Yes (Hospitalization)
  Sender: FDA-Public Use
  Company Number: CIP04001997

PATIENT
  Age: 81 Year
  Sex: Female

DRUGS (5)
  1. ACTONEL [Suspect]
     Indication: LUMBAR VERTEBRAL FRACTURE
     Dosage: 2.5 MG, DAILY, ORAL
     Route: 048
     Dates: start: 20040723, end: 20040822
  2. CONIEL (BENIDIPINE HYDROCHLORIDE) [Concomitant]
  3. URSO [Concomitant]
  4. PROHEPARUM (CHOLINE BITARTRATE, CYANOCOBALAMIN, CYSTEINE, INOSITOL, LI [Concomitant]
  5. LIVACT (AMINO ACIDS NOS) [Concomitant]

REACTIONS (11)
  - BLOOD ALBUMIN DECREASED [None]
  - CONDITION AGGRAVATED [None]
  - DIARRHOEA [None]
  - ENTEROCOLITIS HAEMORRHAGIC [None]
  - HAEMATOCRIT DECREASED [None]
  - HAEMOGLOBIN DECREASED [None]
  - MELAENA [None]
  - MONOCYTE COUNT INCREASED [None]
  - PLATELET COUNT DECREASED [None]
  - PROTEIN TOTAL DECREASED [None]
  - RED BLOOD CELL COUNT DECREASED [None]
